FAERS Safety Report 7475792-8 (Version None)
Quarter: 2011Q2

REPORT INFORMATION
  Report Type: 
  Country: None (occurrence: None)
  Receive Date: 20110510
  Receipt Date: 20110510
  Transmission Date: 20111010
  Serious: Yes (Hospitalization)
  Sender: FDA-Public Use
  Company Number: None

PATIENT
  Age: 51 Year
  Sex: Female

DRUGS (5)
  1. LISINOPRIL [Suspect]
     Indication: HYPERTENSION
     Dosage: 20 MG DAILY PO
     Route: 048
  2. SEROQUEL [Concomitant]
  3. ZANTAC [Concomitant]
  4. TRAMADOL HCL [Concomitant]
  5. ADVIL LIQUI-GELS [Concomitant]

REACTIONS (4)
  - HYPOTENSION [None]
  - DIZZINESS [None]
  - HYPOAESTHESIA [None]
  - HEADACHE [None]
